FAERS Safety Report 16941866 (Version 1)
Quarter: 2019Q4

REPORT INFORMATION
  Report Type: Spontaneous
  Country: TR (occurrence: TR)
  Receive Date: 20191021
  Receipt Date: 20191021
  Transmission Date: 20200122
  Serious: Yes (Other)
  Sender: FDA-Public Use
  Company Number: NVSC2019TR002847

PATIENT
  Sex: Female

DRUGS (3)
  1. RISPERIDONE. [Suspect]
     Active Substance: RISPERIDONE
     Indication: AGITATION
     Dosage: 2.5 MG, BID
     Route: 065
  2. EXELON [Suspect]
     Active Substance: RIVASTIGMINE TARTRATE
     Indication: DEMENTIA ALZHEIMER^S TYPE
     Dosage: 13.3 MG, QD (PATCH 15 (CM2), 27 MG RIVASTIGMINE BASE)
     Route: 065
  3. RISPERIDONE. [Suspect]
     Active Substance: RISPERIDONE
     Dosage: 0.50 MG, QD
     Route: 065

REACTIONS (20)
  - Feeling abnormal [Unknown]
  - Urinary incontinence [Unknown]
  - Dysstasia [Unknown]
  - Incorrect dose administered [Unknown]
  - Respiratory rate increased [Recovered/Resolved]
  - Hyperhidrosis [Recovered/Resolved]
  - Incontinence [Unknown]
  - Respiratory rate increased [Unknown]
  - Constipation [Unknown]
  - Feeling abnormal [Recovered/Resolved]
  - Sleep disorder [Not Recovered/Not Resolved]
  - Hyperhidrosis [Unknown]
  - Gait disturbance [Unknown]
  - Urinary retention [Unknown]
  - Tremor [Unknown]
  - Urinary retention [Recovered/Resolved]
  - Muscle contractions involuntary [Unknown]
  - Tachycardia [Unknown]
  - Movement disorder [Unknown]
  - Spinal column injury [Recovering/Resolving]
